FAERS Safety Report 12912329 (Version 4)
Quarter: 2017Q2

REPORT INFORMATION
  Report Type: Report from Study
  Country: None (occurrence: CO)
  Receive Date: 20161104
  Receipt Date: 20170525
  Transmission Date: 20170830
  Serious: Yes (Other)
  Sender: FDA-Public Use
  Company Number: CO-ABBVIE-16K-036-1771430-00

PATIENT
  Age: 66 Year
  Sex: Female
  Weight: 69 kg

DRUGS (1)
  1. HUMIRA [Suspect]
     Active Substance: ADALIMUMAB
     Indication: ANKYLOSING SPONDYLITIS
     Route: 058
     Dates: start: 20100629, end: 20161011

REACTIONS (5)
  - Pterygium [Recovering/Resolving]
  - Visual impairment [Unknown]
  - Cataract [Unknown]
  - Post procedural complication [Unknown]
  - Injury corneal [Not Recovered/Not Resolved]

NARRATIVE: CASE EVENT DATE: 201007
